FAERS Safety Report 11010606 (Version 1)
Quarter: 2015Q2

REPORT INFORMATION
  Report Type: Spontaneous
  Country: TR (occurrence: TR)
  Receive Date: 20150410
  Receipt Date: 20150410
  Transmission Date: 20150821
  Serious: Yes (Other)
  Sender: FDA-Public Use
  Company Number: TR-ASTRAZENECA-2015SE31639

PATIENT
  Age: 27 Year
  Sex: Female

DRUGS (3)
  1. EMLA [Suspect]
     Active Substance: LIDOCAINE\PRILOCAINE
     Route: 061
  2. LIDOCAINE. [Suspect]
     Active Substance: LIDOCAINE
     Dosage: JUVEDERM ULTRA PLUS XC (NON AZ PRODUCT)
     Route: 065
  3. HYALURONIC ACID [Suspect]
     Active Substance: HYALURONIC ACID
     Dosage: 1 ML (0.5 ML PER LIP) OF 24 MG/ML ( JUVEDERM ULTRA PLUS XC)
     Route: 065

REACTIONS (1)
  - Hypersensitivity [Recovered/Resolved]
